FAERS Safety Report 5712012-6 (Version None)
Quarter: 2008Q2

REPORT INFORMATION
  Report Type: 
  Country: None (occurrence: None)
  Receive Date: 20080417
  Receipt Date: 20080409
  Transmission Date: 20081010
  Serious: Yes (Death, Other)
  Sender: FDA-Public Use
  Company Number: 151-C5013-07101136

PATIENT
  Age: 74 Year
  Sex: Female

DRUGS (7)
  1. CC-5013 (LENALIDOMIDE) (10 MILLIGRAM, CAPSULES) [Suspect]
     Indication: MYELODYSPLASTIC SYNDROME
     Dosage: ORAL
     Route: 048
     Dates: start: 20070625, end: 20070601
  2. NEULASTA [Concomitant]
  3. BENERVA (THIAMINE HYDROCHLORIDE) [Concomitant]
  4. EXJADE [Concomitant]
  5. ASP CARDIO (ACETYLSALICYLIC ACID) [Concomitant]
  6. ACETAMINOPHEN [Concomitant]
  7. NEUPOGEN [Concomitant]

REACTIONS (4)
  - HAEMATOTOXICITY [None]
  - LUNG INFECTION [None]
  - NEUTROPENIA [None]
  - SEPTIC SHOCK [None]
